FAERS Safety Report 26170750 (Version 1)
Quarter: 2025Q4

REPORT INFORMATION
  Report Type: Spontaneous
  Country: US (occurrence: US)
  Receive Date: 20251217
  Receipt Date: 20251217
  Transmission Date: 20260117
  Serious: No
  Sender: ALVOGEN
  Company Number: US-ALVOGEN-2025097944

PATIENT
  Age: 68 Year
  Sex: Male

DRUGS (2)
  1. FENTANYL [Suspect]
     Active Substance: FENTANYL
     Indication: Cancer pain
     Dosage: SINCE 2 AND HALF YEARS
     Route: 062
  2. FENTANYL [Suspect]
     Active Substance: FENTANYL
     Indication: Cancer pain
     Dosage: EXPIRATION DATE: SEP-2027?NO, PATCHES HAD BEEN DISCARDED. ?75 MCG/H
     Route: 062
     Dates: start: 202504

REACTIONS (5)
  - Application site rash [Unknown]
  - Device malfunction [Unknown]
  - Device adhesion issue [Unknown]
  - Wrong technique in product usage process [Unknown]
  - Multiple use of single-use product [Unknown]

NARRATIVE: CASE EVENT DATE: 20250425
